FAERS Safety Report 8049458-X (Version None)
Quarter: 2012Q1

REPORT INFORMATION
  Report Type: 
  Country: None (occurrence: None)
  Receive Date: 20120111
  Receipt Date: 20111230
  Transmission Date: 20120608
  Serious: Yes (Hospitalization)
  Sender: FDA-Public Use
  Company Number: JPI-P-018924

PATIENT
  Age: 67 Year
  Sex: Male
  Weight: 115.6672 kg

DRUGS (5)
  1. DEXTROMETHORPHAN HBR W/DOXYLAMINE SUCCINATE AND ACETAMINOPHEN [Suspect]
     Indication: COUGH
     Dosage: (1 DOSAGE FORMS)
     Dates: start: 20111225
  2. MULTIPLE UNSPECIFIED MEDICATIONS [Concomitant]
  3. XYREM [Suspect]
     Indication: CATAPLEXY
     Dosage: , ORAL ; 6 GM (3 GM 2 IN 1 D) , ORAL
     Route: 048
     Dates: start: 20110901, end: 20110101
  4. XYREM [Suspect]
     Indication: CATAPLEXY
     Dosage: , ORAL ; 6 GM (3 GM 2 IN 1 D) , ORAL
     Route: 048
     Dates: start: 20110101, end: 20111225
  5. ACETAMINOPHEN [Concomitant]

REACTIONS (4)
  - NASOPHARYNGITIS [None]
  - DYSARTHRIA [None]
  - CONFUSIONAL STATE [None]
  - MYALGIA [None]
